FAERS Safety Report 8021611-0 (Version None)
Quarter: 2012Q1

REPORT INFORMATION
  Report Type: 
  Country: None (occurrence: None)
  Receive Date: 20120104
  Receipt Date: 20120104
  Transmission Date: 20120608
  Serious: Yes (Other)
  Sender: FDA-Public Use
  Company Number: None

PATIENT
  Sex: Male
  Weight: 83.914 kg

DRUGS (1)
  1. ZOCOR [Suspect]
     Indication: BLOOD CHOLESTEROL INCREASED
     Dosage: 20MG
     Route: 048
     Dates: start: 20061201, end: 20061214

REACTIONS (3)
  - NIGHTMARE [None]
  - INSOMNIA [None]
  - FEELING ABNORMAL [None]
